FAERS Safety Report 10128139 (Version 1)
Quarter: 2014Q2

REPORT INFORMATION
  Report Type: Spontaneous
  Country: DE (occurrence: DE)
  Receive Date: 20140428
  Receipt Date: 20140428
  Transmission Date: 20141212
  Serious: Yes (Hospitalization)
  Sender: FDA-Public Use
  Company Number: DE-BIOGENIDEC-2014BI037065

PATIENT
  Age: 54 Year
  Sex: Female
  Weight: 52 kg

DRUGS (6)
  1. TECFIDERA [Suspect]
     Indication: MULTIPLE SCLEROSIS
     Route: 048
     Dates: start: 20140306, end: 20140312
  2. TECFIDERA [Suspect]
     Indication: MULTIPLE SCLEROSIS
     Route: 048
     Dates: start: 20140313
  3. FAMPYRA [Concomitant]
     Indication: GAIT DISTURBANCE
     Route: 048
     Dates: start: 20130614
  4. PRAMIPEXOL [Concomitant]
     Indication: RESTLESS LEGS SYNDROME
     Route: 048
  5. RESTEX [Concomitant]
     Indication: RESTLESS LEGS SYNDROME
     Route: 048
  6. GABAPENTIN [Concomitant]
     Indication: RESTLESS LEGS SYNDROME
     Route: 048

REACTIONS (5)
  - Micturition disorder [Not Recovered/Not Resolved]
  - Haematuria [Not Recovered/Not Resolved]
  - Dysuria [Not Recovered/Not Resolved]
  - Vulvovaginal pain [Not Recovered/Not Resolved]
  - Restless legs syndrome [Not Recovered/Not Resolved]
